FAERS Safety Report 13302566 (Version 2)
Quarter: 2017Q1

REPORT INFORMATION
  Report Type: Report from Study
  Country: IN (occurrence: IN)
  Receive Date: 20170307
  Receipt Date: 20170331
  Transmission Date: 20170428
  Serious: Yes (Hospitalization, Other)
  Sender: FDA-Public Use
  Company Number: IN-BAXTER-2017BAX009929

PATIENT
  Age: 46 Year
  Sex: Male

DRUGS (3)
  1. DIANEAL PD-2 WITH DEXTROSE [Suspect]
     Active Substance: CALCIUM CHLORIDE\DEXTROSE\MAGNESIUM CHLORIDE\SODIUM CHLORIDE\SODIUM LACTATE
     Indication: PERITONEAL DIALYSIS
     Route: 033
     Dates: start: 20150331
  2. EXTRANEAL [Suspect]
     Active Substance: CALCIUM CHLORIDE\ICODEXTRIN\MAGNESIUM CHLORIDE\SODIUM CHLORIDE\SODIUM LACTATE
     Indication: PERITONEAL DIALYSIS
     Route: 033
     Dates: start: 20150505, end: 20170305
  3. DIANEAL PD-2 PERITONEAL DIALYSIS SOLUTION WITH DEXTROSE [Suspect]
     Active Substance: CALCIUM CHLORIDE\DEXTROSE\MAGNESIUM CHLORIDE\SODIUM CHLORIDE\SODIUM LACTATE
     Indication: PERITONEAL DIALYSIS
     Route: 033
     Dates: start: 20150331

REACTIONS (7)
  - Blood potassium increased [Recovered/Resolved]
  - Blood albumin decreased [Recovered/Resolved]
  - Peritonitis [Recovering/Resolving]
  - Peritoneal dialysis complication [Unknown]
  - Haemoglobin decreased [Recovered/Resolved]
  - Blood phosphorus increased [Recovered/Resolved]
  - Peritoneal dialysis complication [Recovered/Resolved]

NARRATIVE: CASE EVENT DATE: 20170321
